FAERS Safety Report 12084796 (Version 2)
Quarter: 2016Q1

REPORT INFORMATION
  Report Type: Report from Study
  Country: TW (occurrence: TW)
  Receive Date: 20160217
  Receipt Date: 20160316
  Transmission Date: 20160526
  Serious: Yes (Other)
  Sender: FDA-Public Use
  Company Number: TW-JNJFOC-20160206650

PATIENT
  Age: 63 Year
  Sex: Male
  Weight: 80 kg

DRUGS (1)
  1. STELARA [Suspect]
     Active Substance: USTEKINUMAB
     Indication: PSORIASIS
     Route: 058
     Dates: start: 20130423, end: 20151201

REACTIONS (11)
  - Nephrolithiasis [Unknown]
  - Aortic arteriosclerosis [Unknown]
  - Enostosis [Unknown]
  - Renal cyst [Unknown]
  - Hepatic cyst [Recovered/Resolved]
  - Splenomegaly [Unknown]
  - Pulmonary mass [Unknown]
  - Spinal osteoarthritis [Unknown]
  - Pulmonary fibrosis [Unknown]
  - Hepatic steatosis [Unknown]
  - Gallbladder polyp [Unknown]

NARRATIVE: CASE EVENT DATE: 20151126
